FAERS Safety Report 9736548 (Version 1)
Quarter: 2013Q4

REPORT INFORMATION
  Report Type: Spontaneous
  Country: US (occurrence: US)
  Receive Date: 20131206
  Receipt Date: 20131206
  Transmission Date: 20140711
  Serious: No
  Sender: FDA-Public Use
  Company Number: US-BIOGENIDEC-2013BI095583

PATIENT
  Age: 69 Year
  Sex: Female
  Weight: 58 kg

DRUGS (7)
  1. TECFIDERA [Suspect]
     Indication: MULTIPLE SCLEROSIS
     Route: 048
     Dates: start: 20130914
  2. TECFIDERA [Suspect]
     Indication: MULTIPLE SCLEROSIS
     Route: 048
  3. PRISTIQ [Concomitant]
     Route: 048
  4. EFFEXOR [Concomitant]
     Route: 048
  5. MORPHINE SUL [Concomitant]
     Route: 048
  6. MS CONTIN [Concomitant]
     Route: 048
  7. MIRAPEX [Concomitant]
     Route: 048

REACTIONS (3)
  - Flushing [Unknown]
  - Fatigue [Unknown]
  - Abdominal pain [Unknown]
